FAERS Safety Report 20771869 (Version 1)
Quarter: 2022Q2

REPORT INFORMATION
  Report Type: Report from Study
  Country: GB (occurrence: GB)
  Receive Date: 20220430
  Receipt Date: 20220430
  Transmission Date: 20220720
  Serious: Yes (Death)
  Sender: FDA-Public Use
  Company Number: GB-BAYER-2018-028302

PATIENT
  Age: 86 Year
  Sex: Female

DRUGS (4)
  1. RIVAROXABAN [Suspect]
     Active Substance: RIVAROXABAN
     Indication: Transient ischaemic attack
     Route: 048
  2. CLOPIDOGREL [Interacting]
     Active Substance: CLOPIDOGREL BISULFATE
     Indication: Transient ischaemic attack
     Route: 065
  3. CLOPIDOGREL [Interacting]
     Active Substance: CLOPIDOGREL BISULFATE
     Indication: Atrial fibrillation
  4. CLOPIDOGREL [Interacting]
     Active Substance: CLOPIDOGREL BISULFATE
     Indication: Cerebral amyloid angiopathy

REACTIONS (3)
  - Cerebral haemorrhage [Fatal]
  - Labelled drug-drug interaction medication error [Fatal]
  - Medication error [Unknown]
